FAERS Safety Report 7878090-3 (Version None)
Quarter: 2011Q4

REPORT INFORMATION
  Report Type: 
  Country: None (occurrence: None)
  Receive Date: 20111101
  Receipt Date: 20111020
  Transmission Date: 20120403
  Serious: No
  Sender: FDA-Public Use
  Company Number: US-BIOGENIDEC-2011BI025876

PATIENT
  Sex: Female

DRUGS (3)
  1. AVONEX [Concomitant]
     Indication: MULTIPLE SCLEROSIS
     Route: 030
  2. TYSABRI [Suspect]
     Indication: MULTIPLE SCLEROSIS
     Route: 042
     Dates: start: 20090123
  3. TYSABRI [Suspect]
     Route: 042

REACTIONS (4)
  - CEREBRAL ATROPHY [None]
  - AMNESIA [None]
  - COGNITIVE DISORDER [None]
  - MEMORY IMPAIRMENT [None]
